FAERS Safety Report 12373200 (Version 1)
Quarter: 2016Q2

REPORT INFORMATION
  Report Type: Spontaneous
  Country: GB (occurrence: GB)
  Receive Date: 20160516
  Receipt Date: 20160516
  Transmission Date: 20160815
  Serious: Yes (Disabling)
  Sender: FDA-Public Use
  Company Number: GB-TEVA-658568ACC

PATIENT
  Age: 83 Year
  Sex: Female
  Weight: 77 kg

DRUGS (20)
  1. ASPIRIN. [Concomitant]
     Active Substance: ASPIRIN
     Dosage: 1 DOSAGE FORMS DAILY; EACH MORNING.
     Dates: start: 20140428
  2. CALCICHEW D3 [Concomitant]
     Active Substance: CALCIUM\CHOLECALCIFEROL
     Dosage: 2 DOSAGE FORMS DAILY;
     Dates: start: 20150105
  3. CODEINE PHOSPHATE [Concomitant]
     Active Substance: CODEINE PHOSPHATE
     Dosage: 4 DOSAGE FORMS DAILY;
     Dates: start: 20150320, end: 20160425
  4. HYOSCINE BUTYLBROMIDE [Concomitant]
     Active Substance: BUTYLSCOPOLAMINE
     Dosage: 6 DOSAGE FORMS DAILY;
     Dates: start: 20130618
  5. LOPERAMIDE [Concomitant]
     Active Substance: LOPERAMIDE
     Dosage: 4 A DAY
     Dates: start: 20150320
  6. MAGNESIUM GLYCEROPHOSPHATE [Concomitant]
     Active Substance: MAGNESIUM GLYCEROPHOSPHATE
     Dates: start: 20160125, end: 20160301
  7. ATORVASTATIN [Concomitant]
     Active Substance: ATORVASTATIN
     Dosage: 1 DOSAGE FORMS DAILY; AT NIGHT.
     Dates: start: 20130618
  8. BISOPROLOL [Concomitant]
     Active Substance: BISOPROLOL
     Dosage: 1 DOSAGE FORMS DAILY; EACH MORNING.
     Dates: start: 20140819
  9. LERCANIDIPINE HYDROCHLORIDE [Concomitant]
     Active Substance: LERCANIDIPINE HYDROCHLORIDE
     Dosage: 1 DOSAGE FORMS DAILY; TAKE ONE DAILY
     Dates: start: 20151210
  10. TRIMETHOPRIM. [Concomitant]
     Active Substance: TRIMETHOPRIM
     Dosage: 2 DOSAGE FORMS DAILY;
     Dates: start: 20160307, end: 20160310
  11. WARFARIN SODIUM. [Concomitant]
     Active Substance: WARFARIN SODIUM
     Dosage: TAKE ONE AS DIRECTED
     Dates: start: 20141007
  12. DALTEPARIN [Concomitant]
     Active Substance: DALTEPARIN
     Dosage: 1 DOSAGE FORMS DAILY; ONCE DAILY
     Dates: start: 20160422
  13. LANSOPRAZOLE. [Concomitant]
     Active Substance: LANSOPRAZOLE
     Dosage: 2 DOSAGE FORMS DAILY;
     Dates: start: 20140428
  14. DIORALYTE [Concomitant]
     Active Substance: CITRIC ACID MONOHYDRATE\DEXTROSE\POTASSIUM CATION\SODIUM CHLORIDE
     Dosage: 1-2 A DAY.
     Dates: start: 20151116
  15. FUROSEMIDE. [Concomitant]
     Active Substance: FUROSEMIDE
     Dosage: 1 DOSAGE FORMS DAILY; EACH MORNING
     Dates: start: 20150921
  16. MAGNESIUM SULPHATE [Concomitant]
     Active Substance: MAGNESIUM SULFATE
     Route: 051
  17. ALLOPURINOL. [Concomitant]
     Active Substance: ALLOPURINOL
     Dosage: 1 DOSAGE FORMS DAILY; IN THE MORNING
     Dates: start: 20130618
  18. QUININE [Concomitant]
     Active Substance: QUININE
     Dosage: AT NIGHT.
     Dates: start: 20130618
  19. METOCLOPRAMIDE. [Suspect]
     Active Substance: METOCLOPRAMIDE
     Dates: start: 20160421
  20. DOMPERIDONE [Concomitant]
     Active Substance: DOMPERIDONE
     Dosage: 3 DOSAGE FORMS DAILY;
     Dates: start: 20160125

REACTIONS (1)
  - Gastrointestinal stoma complication [Recovered/Resolved]

NARRATIVE: CASE EVENT DATE: 20160425
